FAERS Safety Report 12809003 (Version 5)
Quarter: 2016Q4

REPORT INFORMATION
  Report Type: Spontaneous
  Country: US (occurrence: US)
  Receive Date: 20161004
  Receipt Date: 20161222
  Transmission Date: 20170207
  Serious: Yes (Other)
  Sender: FDA-Public Use
  Company Number: US-PFIZER INC-2016458902

PATIENT
  Age: 48 Year
  Sex: Female
  Weight: 52.16 kg

DRUGS (3)
  1. EPINEPHRINE. [Suspect]
     Active Substance: EPINEPHRINE
     Dosage: UNK
  2. PREDNISONE. [Suspect]
     Active Substance: PREDNISONE
     Dosage: 50 MG, 1X/DAY
     Route: 048
  3. SALBUTAMOL [Concomitant]
     Active Substance: ALBUTEROL
     Dosage: UNK
     Route: 042

REACTIONS (5)
  - Blood pressure increased [Recovered/Resolved]
  - Psychomotor hyperactivity [Unknown]
  - Nervousness [Unknown]
  - Clumsiness [Unknown]
  - Insomnia [Unknown]

NARRATIVE: CASE EVENT DATE: 20160928
